FAERS Safety Report 6520409-X (Version None)
Quarter: 2009Q4

REPORT INFORMATION
  Report Type: 
  Country: None (occurrence: None)
  Receive Date: 20091229
  Receipt Date: 20091214
  Transmission Date: 20100525
  Serious: Yes (Life-Threatening, Hospitalization)
  Sender: FDA-Public Use
  Company Number: US-ROCHE-676057

PATIENT
  Sex: Female
  Weight: 85.3 kg

DRUGS (19)
  1. BEVACIZUMAB [Suspect]
     Indication: BREAST CANCER
     Dosage: TOTAL DOSE: 850 MG. STRENGTH: 400MG/16ML.
     Route: 041
     Dates: start: 20091023, end: 20091204
  2. PACLITAXEL [Suspect]
     Dosage: FREQUENCY: 1 DOSE.
     Route: 041
     Dates: start: 20091204, end: 20091204
  3. DOXIL [Concomitant]
     Dosage: 50 MG.
     Dates: start: 20091027
  4. DOXIL [Concomitant]
     Dosage: 50 MG
     Dates: start: 20091106
  5. DOXIL [Concomitant]
     Dosage: 50 MG
     Dates: start: 20091120, end: 20091204
  6. ALPRAZOLAM [Concomitant]
     Dosage: FREQUENCY: AT BEDTIME.  1/2 TAB.
     Route: 048
  7. BENADRYL [Concomitant]
     Route: 042
  8. CHLORPHENIRAMINE MALEATE [Concomitant]
     Dosage: FOR SINUS
  9. DECADRON [Concomitant]
     Route: 042
  10. LEXAPRO [Concomitant]
     Route: 048
  11. LORTAB [Concomitant]
     Dosage: LORTAB 5/500 500MG-5MG.
     Route: 048
  12. LYRICA [Concomitant]
     Route: 048
  13. MAGIC MOUTHWASH NOS [Concomitant]
  14. MEDROL [Concomitant]
     Route: 048
  15. PHENERGAN HCL [Concomitant]
     Route: 048
  16. RANITIDINE [Concomitant]
     Route: 042
  17. TAXOL [Concomitant]
  18. TRAZODONE HCL [Concomitant]
     Dosage: DRUG NAME: TRAZADONE. AT BEDTIME.
  19. ZOFRAN [Concomitant]
     Dosage: AS NEEDED
     Route: 048

REACTIONS (1)
  - STEVENS-JOHNSON SYNDROME [None]
